FAERS Safety Report 7788222-3 (Version None)
Quarter: 2011Q3

REPORT INFORMATION
  Report Type: 
  Country: None (occurrence: None)
  Receive Date: 20110927
  Receipt Date: 20110913
  Transmission Date: 20111222
  Serious: Yes (Hospitalization)
  Sender: FDA-Public Use
  Company Number: 2011MA013471

PATIENT
  Age: 17 Year
  Sex: Female

DRUGS (5)
  1. RIFAMPIN [Suspect]
     Indication: DISSEMINATED TUBERCULOSIS
     Dosage: 400 MG
  2. ETHAMBUTOL HYDROCHLORIDE [Suspect]
     Indication: DISSEMINATED TUBERCULOSIS
     Dosage: 800 MG
  3. PYRAZINAMIDE [Suspect]
     Indication: DISSEMINATED TUBERCULOSIS
     Dosage: 1 G;
  4. PYRIDOXINE HYDROCHLORIDE [Suspect]
     Indication: DISSEMINATED TUBERCULOSIS
  5. ISONIAZID [Suspect]
     Indication: DISSEMINATED TUBERCULOSIS
     Dosage: 300 MG

REACTIONS (1)
  - HEPATITIS [None]
